FAERS Safety Report 7535848-8 (Version None)
Quarter: 2011Q2

REPORT INFORMATION
  Report Type: 
  Country: None (occurrence: None)
  Receive Date: 20110524
  Receipt Date: 20110106
  Transmission Date: 20111010
  Serious: Yes (Hospitalization)
  Sender: FDA-Public Use
  Company Number: 018020

PATIENT
  Sex: Female
  Weight: 64.9 kg

DRUGS (3)
  1. CIMZIA [Suspect]
     Indication: CROHN'S DISEASE
     Dosage: (SUBCUTANEOUS) ; (400 MG 1X/4 WEEKS, PFS SUBCUTANEOUS) ;  (ONE SHOT SUBCUTANEOUS)
     Route: 058
     Dates: start: 20090701
  2. CIMZIA [Suspect]
     Indication: CROHN'S DISEASE
     Dosage: (SUBCUTANEOUS) ; (400 MG 1X/4 WEEKS, PFS SUBCUTANEOUS) ;  (ONE SHOT SUBCUTANEOUS)
     Route: 058
     Dates: start: 20100531
  3. CIMZIA [Suspect]
     Indication: CROHN'S DISEASE
     Dosage: (SUBCUTANEOUS) ; (400 MG 1X/4 WEEKS, PFS SUBCUTANEOUS) ;  (ONE SHOT SUBCUTANEOUS)
     Route: 058
     Dates: end: 20101224

REACTIONS (8)
  - ABDOMINAL DISTENSION [None]
  - SMALL INTESTINAL OBSTRUCTION [None]
  - MALAISE [None]
  - PAINFUL DEFAECATION [None]
  - ABDOMINAL HERNIA [None]
  - BOWEL MOVEMENT IRREGULARITY [None]
  - FATIGUE [None]
  - INTESTINAL OBSTRUCTION [None]
